FAERS Safety Report 8782199 (Version 1)
Quarter: 2012Q4

REPORT INFORMATION
  Report Type: 
  Country: US (occurrence: US)
  Receive Date: 20120913
  Receipt Date: 20120913
  Transmission Date: 20130627
  Serious: No
  Sender: FDA-Public Use
  Company Number: US-VERTEX PHARMACEUTICAL INC.-2012-020006

PATIENT
  Sex: Male

DRUGS (6)
  1. VX-950 [Suspect]
     Indication: HEPATITIS C
     Dosage: UNK
     Route: 048
  2. RIBASPHERE [Concomitant]
     Indication: HEPATITIS C
     Dosage: 600 mg am and 400 mg pm, qd
     Route: 048
  3. PEGASYS [Concomitant]
     Indication: HEPATITIS C
     Dosage: 180 ?g, UNK
  4. SERTRALINE [Concomitant]
     Dosage: 100 mg, UNK
  5. ATENOLOL [Concomitant]
     Dosage: 25 mg, UNK
  6. MULTIVITAMIN AND MINERAL [Concomitant]

REACTIONS (1)
  - Fatigue [Unknown]
